FAERS Safety Report 7360193-3 (Version None)
Quarter: 2011Q1

REPORT INFORMATION
  Report Type: 
  Country: None (occurrence: None)
  Receive Date: 20110307
  Receipt Date: 20110225
  Transmission Date: 20110831
  Serious: Yes (Hospitalization, Disabling)
  Sender: FDA-Public Use
  Company Number: 005775

PATIENT
  Sex: Female
  Weight: 64 kg

DRUGS (13)
  1. NOVAMINSULFON [Concomitant]
  2. CERTOLIZUMAB PEGOL (CERTOLIZUMAB PEGOL) [Suspect]
     Indication: RHEUMATOID ARTHRITIS
     Dosage: SEE IMAGE
     Route: 058
     Dates: start: 20091126, end: 20100107
  3. METEX [Concomitant]
  4. DEKRISTOL [Concomitant]
  5. CALCIUM W/VITAMIN D /00188401/ [Concomitant]
  6. RANITIC [Concomitant]
  7. DICLOFENAC SODIUM [Concomitant]
  8. FOLIC ACID [Concomitant]
  9. SULFASALAZAN [Concomitant]
  10. PANTOZOL /01263202/ [Concomitant]
  11. MAGNESIUM VERLA /02089401/ [Concomitant]
  12. PROMETHAZINE [Concomitant]
  13. PREDNISOLON /00016201/ [Concomitant]

REACTIONS (10)
  - NAUSEA [None]
  - INTERVERTEBRAL DISC PROTRUSION [None]
  - ACQUIRED DIAPHRAGMATIC EVENTRATION [None]
  - BLOOD CALCIUM INCREASED [None]
  - LYMPH NODE TUBERCULOSIS [None]
  - PULMONARY TUBERCULOSIS [None]
  - POST PROCEDURAL COMPLICATION [None]
  - GAMMA-GLUTAMYLTRANSFERASE INCREASED [None]
  - BLOOD ALBUMIN INCREASED [None]
  - HAEMOGLOBIN DECREASED [None]
